FAERS Safety Report 26074853 (Version 1)
Quarter: 2025Q4

REPORT INFORMATION
  Report Type: Report from Study
  Country: US (occurrence: US)
  Receive Date: 20251121
  Receipt Date: 20251121
  Transmission Date: 20260117
  Serious: Yes (Other)
  Sender: ALEXION PHARMACEUTICALS
  Company Number: US-ASTRAZENECA-202511NAM017128US

PATIENT
  Age: 73 Year
  Sex: Male

DRUGS (1)
  1. STRENSIQ [Suspect]
     Active Substance: ASFOTASE ALFA
     Indication: Phosphorus metabolism disorder
     Dosage: 100 MILLIGRAM, SIX TIMES/WEEK
     Route: 065

REACTIONS (7)
  - Loss of consciousness [Unknown]
  - Fall [Unknown]
  - Nerve compression [Unknown]
  - Sluggishness [Unknown]
  - Pain [Unknown]
  - Cellulitis [Unknown]
  - Lacrimation increased [Unknown]
